FAERS Safety Report 8567888-4 (Version None)
Quarter: 2012Q3

REPORT INFORMATION
  Report Type: 
  Country: None (occurrence: None)
  Receive Date: 20120803
  Receipt Date: 20120725
  Transmission Date: 20120928
  Serious: Yes (Death, Hospitalization, Other)
  Sender: FDA-Public Use
  Company Number: US-BAXTER-2012BAX012950

PATIENT
  Sex: Male

DRUGS (17)
  1. HYDROCODONE BITARTRATE [Concomitant]
     Indication: PAIN
     Route: 065
  2. VITAMINS NOS [Concomitant]
     Route: 065
  3. PROCHLORPERAZINE [Concomitant]
     Route: 065
  4. TAMSULOSIN HCL [Concomitant]
     Route: 065
  5. VENLAFAXINE [Concomitant]
     Indication: DEPRESSION
     Route: 065
  6. CYCLOPHOSPHAMIDE [Suspect]
     Indication: MULTIPLE MYELOMA
     Route: 065
  7. ASPIRIN [Concomitant]
     Route: 065
  8. MIRALAX [Concomitant]
     Route: 065
  9. IBUPROFEN (ADVIL) [Concomitant]
     Route: 065
  10. MAGNESIUM OXIDE [Concomitant]
     Route: 065
  11. REVLIMID [Suspect]
     Indication: MULTIPLE MYELOMA
     Route: 048
     Dates: start: 20111002
  12. VELCADE [Suspect]
     Indication: MULTIPLE MYELOMA
     Route: 065
  13. OMEPRAZOLE [Concomitant]
     Route: 065
  14. DECADRON PHOSPHATE [Suspect]
     Indication: MULTIPLE MYELOMA
     Route: 065
  15. OXYCONTIN [Concomitant]
     Indication: PAIN
     Route: 065
  16. TRAZODONE HYDROCHLORIDE [Concomitant]
     Route: 065
  17. FINASTERIDE [Concomitant]
     Route: 065

REACTIONS (5)
  - ENCEPHALOPATHY [None]
  - MULTIPLE MYELOMA [None]
  - HYPERCALCAEMIA [None]
  - ANAEMIA [None]
  - RENAL FAILURE [None]
